FAERS Safety Report 7497265-9 (Version None)
Quarter: 2011Q2

REPORT INFORMATION
  Report Type: 
  Country: None (occurrence: None)
  Receive Date: 20110523
  Receipt Date: 20110510
  Transmission Date: 20111010
  Serious: Yes (Hospitalization, Other)
  Sender: FDA-Public Use
  Company Number: PHHY2009CA37317

PATIENT
  Sex: Male

DRUGS (6)
  1. SANDOSTATIN LAR [Suspect]
     Indication: CARCINOID TUMOUR
     Dosage: 60 MG, BIW
     Route: 030
     Dates: start: 20070402
  2. SANDOSTATIN LAR [Suspect]
     Dosage: 60 MG, BIW
     Route: 030
  3. SANDOSTATIN LAR [Suspect]
     Dosage: 60 MG, QMO
     Route: 030
  4. SANDOSTATIN LAR [Suspect]
     Dosage: 60 MG EVERY 2 WEEKS
     Route: 030
  5. SANDOSTATIN LAR [Suspect]
     Dosage: 60 MG, EVERY 4 WEEKS
     Route: 030
  6. ANTIBIOTICS [Concomitant]

REACTIONS (20)
  - LUNG NEOPLASM [None]
  - COLLAPSE OF LUNG [None]
  - FATIGUE [None]
  - FLUSHING [None]
  - JOINT SWELLING [None]
  - BLOOD PRESSURE INCREASED [None]
  - MASS [None]
  - DYSURIA [None]
  - MUSCULOSKELETAL PAIN [None]
  - PAIN [None]
  - DEHYDRATION [None]
  - TOOTHACHE [None]
  - DYSPHAGIA [None]
  - URINARY TRACT INFECTION [None]
  - DYSPNOEA [None]
  - GROIN PAIN [None]
  - OROPHARYNGEAL PAIN [None]
  - DIZZINESS [None]
  - BLOOD URINE PRESENT [None]
  - NEPHROLITHIASIS [None]
